FAERS Safety Report 7257367-9 (Version None)
Quarter: 2011Q1

REPORT INFORMATION
  Report Type: 
  Country: None (occurrence: None)
  Receive Date: 20110129
  Receipt Date: 20100729
  Transmission Date: 20110831
  Serious: No
  Sender: FDA-Public Use
  Company Number: US-ABBOTT-10P-163-0661378-00

PATIENT
  Sex: Female
  Weight: 72.64 kg

DRUGS (3)
  1. METHOTREXATE [Concomitant]
     Route: 048
     Dates: end: 20100301
  2. METHOTREXATE [Concomitant]
     Indication: PRODUCT USED FOR UNKNOWN INDICATION
     Route: 048
     Dates: start: 20100715
  3. HUMIRA [Suspect]
     Indication: PSORIATIC ARTHROPATHY
     Route: 058
     Dates: start: 20080101, end: 20100701

REACTIONS (2)
  - PSORIATIC ARTHROPATHY [None]
  - SWELLING FACE [None]
